FAERS Safety Report 11823568 (Version 3)
Quarter: 2015Q4

REPORT INFORMATION
  Report Type: Spontaneous
  Country: IT (occurrence: IT)
  Receive Date: 20151210
  Receipt Date: 20151228
  Transmission Date: 20160305
  Serious: Yes (Other)
  Sender: FDA-Public Use
  Company Number: IT-PFIZER INC-2015435920

PATIENT
  Age: 7 Year
  Sex: Male

DRUGS (3)
  1. PULMAXAN [Concomitant]
     Active Substance: BUDESONIDE
     Dosage: UNK
  2. NUROFEN [Concomitant]
     Active Substance: IBUPROFEN
     Dosage: UNK
  3. CEFODOX [Suspect]
     Active Substance: CEFPODOXIME PROXETIL
     Indication: PHARYNGOTONSILLITIS
     Dosage: 26 ML, DAILY
     Route: 048
     Dates: start: 20151127, end: 20151129

REACTIONS (1)
  - Eczema [Recovering/Resolving]

NARRATIVE: CASE EVENT DATE: 20151129
